FAERS Safety Report 7462771-X (Version None)
Quarter: 2011Q2

REPORT INFORMATION
  Report Type: 
  Country: None (occurrence: None)
  Receive Date: 20110506
  Receipt Date: 20110501
  Transmission Date: 20111010
  Serious: Yes (Death)
  Sender: FDA-Public Use
  Company Number: US-PFIZER INC-2011064844

PATIENT
  Sex: Male
  Weight: 95.238 kg

DRUGS (16)
  1. EZETIMIBE [Concomitant]
     Dosage: UNK
     Route: 048
     Dates: start: 20100401, end: 20110318
  2. METOPROLOL TARTRATE [Concomitant]
     Dosage: UNK
     Route: 048
     Dates: start: 20101127, end: 20110318
  3. TAMSULOSIN [Concomitant]
     Dosage: UNK
     Route: 048
     Dates: start: 20080101, end: 20110318
  4. AMIODARONE [Concomitant]
     Dosage: UNK
     Route: 048
     Dates: start: 20110103, end: 20110318
  5. HYDROCHLOROTHIAZIDE [Concomitant]
     Dosage: UNK
     Route: 048
     Dates: start: 19960101, end: 20110318
  6. ALBUTEROL [Concomitant]
     Dosage: UNK
     Route: 055
     Dates: start: 20101127, end: 20110318
  7. CELECOXIB [Suspect]
     Indication: OSTEOARTHRITIS
     Dosage: 100 MG, 2X/DAY
     Route: 048
     Dates: start: 20101119
  8. NEXIUM [Concomitant]
     Dosage: 20 MG, UNK
  9. DULCOLAX [Concomitant]
     Dosage: UNK
     Route: 048
     Dates: start: 20100601, end: 20110318
  10. DABIGATRAN ETEXILATE [Concomitant]
     Dosage: UNK
     Route: 048
     Dates: start: 20110103, end: 20110318
  11. SODIUM PHOSPHATES [Concomitant]
     Dosage: UNK
     Route: 054
     Dates: start: 20110118, end: 20110318
  12. FEXOFENADINE [Concomitant]
     Dosage: UNK
     Route: 048
     Dates: start: 20080101, end: 20110318
  13. MULTI-VITAMINS [Concomitant]
     Dosage: UNK
     Route: 048
     Dates: start: 19800101, end: 20110318
  14. ROSUVASTATIN [Concomitant]
     Dosage: UNK
     Route: 048
     Dates: start: 20080101, end: 20110318
  15. OSTEO BI-FLEX [Concomitant]
     Dosage: UNK
     Route: 048
     Dates: start: 20100401, end: 20110318
  16. NITROSTAT [Concomitant]
     Dosage: UNK
     Route: 048
     Dates: start: 19960101, end: 20110318

REACTIONS (1)
  - DEATH [None]
